FAERS Safety Report 5236220-6 (Version None)
Quarter: 2007Q1

REPORT INFORMATION
  Report Type: 
  Country: None (occurrence: None)
  Receive Date: 20061208
  Receipt Date: 20060127
  Transmission Date: 20070707
  Serious: Yes (Other)
  Sender: FDA-Public Use
  Company Number: 2006UW01523

PATIENT
  Age: 40 Year
  Sex: Male

DRUGS (1)
  1. CRESTOR [Suspect]
     Dosage: 10 MG PO
     Route: 048

REACTIONS (2)
  - HIGH DENSITY LIPOPROTEIN DECREASED [None]
  - HIGH DENSITY LIPOPROTEIN INCREASED [None]
